FAERS Safety Report 16841960 (Version 1)
Quarter: 2019Q3

REPORT INFORMATION
  Report Type: Report from Study
  Country: US (occurrence: US)
  Receive Date: 20190923
  Receipt Date: 20190923
  Transmission Date: 20191005
  Serious: No
  Sender: FDA-Public Use
  Company Number: US-INCYTE CORPORATION-2019IN008327

PATIENT

DRUGS (1)
  1. JAKAFI [Suspect]
     Active Substance: RUXOLITINIB
     Indication: MYELOFIBROSIS
     Dosage: 10MG (2 TABS 5MG) QAM, 15MG (3 TABS 5MG) QPM
     Route: 048
     Dates: start: 20190611, end: 20190807

REACTIONS (1)
  - Product dose omission [Unknown]
